FAERS Safety Report 6157491-8 (Version None)
Quarter: 2009Q2

REPORT INFORMATION
  Report Type: 
  Country: None (occurrence: None)
  Receive Date: 20090416
  Receipt Date: 20090414
  Transmission Date: 20091009
  Serious: Yes (Death, Hospitalization)
  Sender: FDA-Public Use
  Company Number: PHEH2009US03671

PATIENT
  Age: 73 Year
  Sex: Female

DRUGS (4)
  1. EXELON [Suspect]
     Dosage: UNK, UNK
     Route: 062
  2. ASPIRIN [Concomitant]
  3. ANTIHYPERTENSIVES [Concomitant]
     Dosage: UNK, UNK
  4. CHOLESTEROL- AND TRIGLYCERIDE REDUCERS [Concomitant]
     Dosage: UNK, UNK

REACTIONS (5)
  - ANOREXIA [None]
  - DEATH [None]
  - DIARRHOEA [None]
  - INFLUENZA [None]
  - VOMITING [None]
